FAERS Safety Report 22099436 (Version 1)
Quarter: 2023Q1

REPORT INFORMATION
  Report Type: Spontaneous
  Country: SE (occurrence: SE)
  Receive Date: 20230315
  Receipt Date: 20230315
  Transmission Date: 20230417
  Serious: Yes (Other)
  Sender: FDA-Public Use
  Company Number: SE-002147023-NVSC2023SE042808

PATIENT
  Sex: Female

DRUGS (5)
  1. METOPROLOL [Suspect]
     Active Substance: METOPROLOL
     Indication: Product used for unknown indication
     Dosage: UNK
     Route: 065
  2. OMEPRAZOLE [Suspect]
     Active Substance: OMEPRAZOLE
     Indication: Product used for unknown indication
     Dosage: UNK, QD
     Route: 065
  3. ACLASTA [Suspect]
     Active Substance: ZOLEDRONIC ACID
     Indication: Osteoporosis
     Dosage: 1 DF, QY, Q12MO (FOR 3 YEARS) (FROM 20 JAN)
     Route: 065
  4. ELIQUIS [Concomitant]
     Active Substance: APIXABAN
     Indication: Product used for unknown indication
     Dosage: UNK
     Route: 065
  5. MULTAQ [Concomitant]
     Active Substance: DRONEDARONE
     Indication: Product used for unknown indication
     Dosage: UNK
     Route: 065

REACTIONS (32)
  - Conjunctival haemorrhage [Unknown]
  - Atrial fibrillation [Unknown]
  - Palpitations [Unknown]
  - Asthenia [Unknown]
  - Blood pressure increased [Unknown]
  - Inflammatory pain [Unknown]
  - Pyrexia [Unknown]
  - Feeling abnormal [Unknown]
  - Wound [Unknown]
  - Eye pain [Unknown]
  - Eye infection [Unknown]
  - Thirst [Unknown]
  - Skin irritation [Unknown]
  - Eye pruritus [Unknown]
  - Neck pain [Unknown]
  - Peripheral swelling [Unknown]
  - Myalgia [Unknown]
  - Malaise [Unknown]
  - Jaw disorder [Unknown]
  - Bone pain [Unknown]
  - Tremor [Unknown]
  - Pain in jaw [Unknown]
  - Back pain [Unknown]
  - Fatigue [Unknown]
  - Dizziness [Unknown]
  - Swelling [Unknown]
  - Arthralgia [Unknown]
  - Anxiety [Unknown]
  - Dry mouth [Unknown]
  - Hyperhidrosis [Unknown]
  - Blood pressure decreased [Unknown]
  - Headache [Unknown]
